FAERS Safety Report 8962174 (Version 1)
Quarter: 2012Q4

REPORT INFORMATION
  Report Type: Report from Study
  Country: CA (occurrence: CA)
  Receive Date: 20121212
  Receipt Date: 20121212
  Transmission Date: 20130627
  Serious: Yes (Hospitalization)
  Sender: FDA-Public Use
  Company Number: CA-ROCHE-1164149

PATIENT
  Sex: Female
  Weight: 99.88 kg

DRUGS (10)
  1. OMALIZUMAB [Suspect]
     Indication: ASTHMA
     Route: 058
     Dates: start: 20060523
  2. SINGULAIR [Concomitant]
  3. OXYCOCET [Concomitant]
  4. SYMBICORT [Concomitant]
     Route: 065
  5. PANTOLOC [Concomitant]
  6. DOMPERIDONE [Concomitant]
  7. BECONASE AQUA [Concomitant]
     Route: 065
  8. METFORMIN [Concomitant]
  9. ACCURETIC [Concomitant]
  10. HUMALOG [Concomitant]

REACTIONS (5)
  - Asthma [Recovered/Resolved]
  - Exercise tolerance decreased [Recovered/Resolved]
  - Gastrooesophageal reflux disease [Not Recovered/Not Resolved]
  - Malaise [Not Recovered/Not Resolved]
  - Heart rate increased [Not Recovered/Not Resolved]
